FAERS Safety Report 7247210-6 (Version None)
Quarter: 2011Q1

REPORT INFORMATION
  Report Type: 
  Country: None (occurrence: None)
  Receive Date: 20110127
  Receipt Date: 20110120
  Transmission Date: 20110831
  Serious: Yes (Congenital Anomaly)
  Sender: FDA-Public Use
  Company Number: DE-GILEAD-2010-0032820

PATIENT
  Sex: Female
  Weight: 0.676 kg

DRUGS (4)
  1. EFAVIRENZ [Concomitant]
     Route: 064
  2. TRUVADA [Suspect]
     Indication: HIV INFECTION
     Route: 064
     Dates: start: 20071016
  3. REYATAZ [Concomitant]
     Route: 064
     Dates: start: 20071016
  4. NORVIR [Concomitant]
     Route: 064
     Dates: start: 20061001

REACTIONS (10)
  - PERITONITIS [None]
  - RESPIRATORY DISTRESS [None]
  - CEREBRAL PALSY [None]
  - RETINOPATHY OF PREMATURITY [None]
  - INTESTINAL PERFORATION [None]
  - PATENT DUCTUS ARTERIOSUS [None]
  - HYDROCEPHALUS [None]
  - INTRAVENTRICULAR HAEMORRHAGE [None]
  - MICROCEPHALY [None]
  - STRABISMUS [None]
